FAERS Safety Report 10192037 (Version 1)
Quarter: 2014Q2

REPORT INFORMATION
  Report Type: Spontaneous
  Country: CN (occurrence: CN)
  Receive Date: 20140523
  Receipt Date: 20140523
  Transmission Date: 20141212
  Serious: Yes (Other)
  Sender: FDA-Public Use
  Company Number: CN-PFIZER INC-2014141075

PATIENT
  Age: 23 Year
  Sex: Female
  Weight: 61.5 kg

DRUGS (2)
  1. CARBOPROST TROMETAMOL [Suspect]
     Indication: POSTPARTUM HAEMORRHAGE
     Dosage: 2 INJECTIONS, ONCE
     Dates: start: 20130619, end: 20130619
  2. OXYTOCIN [Suspect]
     Indication: POSTPARTUM HAEMORRHAGE
     Dosage: 10 UNITS, ONCE
     Route: 030
     Dates: start: 20130619, end: 20130619

REACTIONS (2)
  - Tremor [Recovering/Resolving]
  - Intentional product misuse [Unknown]
